FAERS Safety Report 10369608 (Version 1)
Quarter: 2014Q3

REPORT INFORMATION
  Report Type: Spontaneous
  Country: US (occurrence: US)
  Receive Date: 20140807
  Receipt Date: 20140807
  Transmission Date: 20150326
  Serious: No
  Sender: FDA-Public Use
  Company Number: US-AMGEN INC.-USASP2014024779

PATIENT
  Age: 60 Year
  Sex: Female

DRUGS (57)
  1. HERCEPTIN [Suspect]
     Active Substance: TRASTUZUMAB
     Dosage: 140 MG, UNK
     Route: 042
     Dates: start: 20120629
  2. HERCEPTIN [Suspect]
     Active Substance: TRASTUZUMAB
     Dosage: 140 MG, UNK
     Route: 042
     Dates: start: 20120810
  3. HERCEPTIN [Suspect]
     Active Substance: TRASTUZUMAB
     Dosage: 140 MG, UNK
     Route: 042
     Dates: start: 20120831
  4. HERCEPTIN [Suspect]
     Active Substance: TRASTUZUMAB
     Dosage: 140 MG, UNK
     Route: 042
     Dates: start: 20120907
  5. HERCEPTIN [Suspect]
     Active Substance: TRASTUZUMAB
     Dosage: 156 MG, UNK
     Route: 042
     Dates: start: 20130405
  6. CARBOPLATIN. [Concomitant]
     Active Substance: CARBOPLATIN
     Indication: BREAST CANCER
     Dosage: UNK
     Route: 042
  7. HERCEPTIN [Suspect]
     Active Substance: TRASTUZUMAB
     Dosage: 140 MG, UNK
     Route: 042
     Dates: start: 20120511
  8. HERCEPTIN [Suspect]
     Active Substance: TRASTUZUMAB
     Dosage: 156 MG, UNK
     Route: 042
     Dates: start: 20120928
  9. HERCEPTIN [Suspect]
     Active Substance: TRASTUZUMAB
     Dosage: 156 MG, UNK
     Route: 042
     Dates: start: 20121130
  10. HERCEPTIN [Suspect]
     Active Substance: TRASTUZUMAB
     Dosage: 156 MG, UNK
     Route: 042
     Dates: start: 20121207
  11. HERCEPTIN [Suspect]
     Active Substance: TRASTUZUMAB
     Dosage: 156 MG, UNK
     Route: 042
     Dates: start: 20121221
  12. HERCEPTIN [Suspect]
     Active Substance: TRASTUZUMAB
     Dosage: 156 MG, UNK
     Route: 042
     Dates: start: 20130118
  13. TAXOL [Suspect]
     Active Substance: PACLITAXEL
     Indication: BREAST CANCER
     Dosage: 127 MG, UNK
     Route: 065
  14. SOLU-MEDROL [Concomitant]
     Active Substance: METHYLPREDNISOLONE SODIUM SUCCINATE
     Dosage: 125 MG, UNK
     Route: 042
  15. HERCEPTIN [Suspect]
     Active Substance: TRASTUZUMAB
     Dosage: 140 MG, UNK
     Route: 042
     Dates: start: 20120713
  16. HERCEPTIN [Suspect]
     Active Substance: TRASTUZUMAB
     Dosage: 140 MG, UNK
     Route: 042
     Dates: start: 20120720
  17. HERCEPTIN [Suspect]
     Active Substance: TRASTUZUMAB
     Dosage: 156 MG, UNK
     Route: 042
     Dates: start: 20121019
  18. HERCEPTIN [Suspect]
     Active Substance: TRASTUZUMAB
     Dosage: 156 MG, UNK
     Route: 042
     Dates: start: 20121123
  19. HERCEPTIN [Suspect]
     Active Substance: TRASTUZUMAB
     Dosage: 156 MG, UNK
     Route: 042
     Dates: start: 20130201
  20. HERCEPTIN [Suspect]
     Active Substance: TRASTUZUMAB
     Dosage: 156 MG, UNK
     Route: 042
     Dates: start: 20130315
  21. HERCEPTIN [Suspect]
     Active Substance: TRASTUZUMAB
     Dosage: 156 MG, UNK
     Route: 042
     Dates: start: 20130412
  22. NEUPOGEN [Suspect]
     Active Substance: FILGRASTIM
     Indication: BREAST CANCER
     Dosage: 480 MUG, UNK
     Route: 058
     Dates: start: 20120427
  23. HERCEPTIN [Suspect]
     Active Substance: TRASTUZUMAB
     Indication: BREAST CANCER
     Dosage: 290 MG, UNK
     Route: 042
     Dates: start: 20120420
  24. HERCEPTIN [Suspect]
     Active Substance: TRASTUZUMAB
     Dosage: 140 MG, UNK
     Route: 042
     Dates: start: 20120518
  25. HERCEPTIN [Suspect]
     Active Substance: TRASTUZUMAB
     Dosage: 140 MG, UNK
     Route: 042
     Dates: start: 20120706
  26. HERCEPTIN [Suspect]
     Active Substance: TRASTUZUMAB
     Dosage: 140 MG, UNK
     Route: 042
     Dates: start: 20120824
  27. HERCEPTIN [Suspect]
     Active Substance: TRASTUZUMAB
     Dosage: 156 MG, UNK
     Route: 042
     Dates: start: 20120921
  28. HERCEPTIN [Suspect]
     Active Substance: TRASTUZUMAB
     Dosage: 156 MG, UNK
     Route: 042
     Dates: start: 20121109
  29. HERCEPTIN [Suspect]
     Active Substance: TRASTUZUMAB
     Dosage: 156 MG, UNK
     Route: 042
     Dates: start: 20121116
  30. HERCEPTIN [Suspect]
     Active Substance: TRASTUZUMAB
     Dosage: 156 MG, UNK
     Route: 042
     Dates: start: 20130104
  31. BENADRYL [Concomitant]
     Active Substance: DIPHENHYDRAMINE HYDROCHLORIDE
     Dosage: 25 MG, UNK
     Route: 042
  32. HERCEPTIN [Suspect]
     Active Substance: TRASTUZUMAB
     Dosage: 140 MG, UNK
     Route: 042
     Dates: start: 20120525
  33. HERCEPTIN [Suspect]
     Active Substance: TRASTUZUMAB
     Dosage: 140 MG, UNK
     Route: 042
     Dates: start: 20120608
  34. HERCEPTIN [Suspect]
     Active Substance: TRASTUZUMAB
     Dosage: 140 MG, UNK
     Route: 042
     Dates: start: 20120615
  35. HERCEPTIN [Suspect]
     Active Substance: TRASTUZUMAB
     Dosage: 140 MG, UNK
     Route: 042
     Dates: start: 20120622
  36. HERCEPTIN [Suspect]
     Active Substance: TRASTUZUMAB
     Dosage: 140 MG, UNK
     Route: 042
     Dates: start: 20120803
  37. HERCEPTIN [Suspect]
     Active Substance: TRASTUZUMAB
     Dosage: 156 MG, UNK
     Route: 042
     Dates: start: 20121012
  38. HERCEPTIN [Suspect]
     Active Substance: TRASTUZUMAB
     Dosage: 156 MG, UNK
     Route: 042
     Dates: start: 20130208
  39. HERCEPTIN [Suspect]
     Active Substance: TRASTUZUMAB
     Dosage: 156 MG, UNK
     Route: 042
     Dates: start: 20130215
  40. NEUPOGEN [Suspect]
     Active Substance: FILGRASTIM
     Dosage: 480 MUG, UNK
     Route: 058
     Dates: start: 20120518
  41. HERCEPTIN [Suspect]
     Active Substance: TRASTUZUMAB
     Dosage: 140 MG, UNK
     Route: 042
     Dates: start: 20120727
  42. HERCEPTIN [Suspect]
     Active Substance: TRASTUZUMAB
     Dosage: 156 MG, UNK
     Route: 042
     Dates: start: 20120914
  43. HERCEPTIN [Suspect]
     Active Substance: TRASTUZUMAB
     Dosage: 156 MG, UNK
     Route: 042
     Dates: start: 20121005
  44. HERCEPTIN [Suspect]
     Active Substance: TRASTUZUMAB
     Dosage: 156 MG, UNK
     Route: 042
     Dates: start: 20130301
  45. NEUPOGEN [Suspect]
     Active Substance: FILGRASTIM
     Dosage: 480 MUG, UNK
     Route: 058
     Dates: start: 20120608
  46. HERCEPTIN [Suspect]
     Active Substance: TRASTUZUMAB
     Dosage: 140 MG, UNK
     Route: 042
     Dates: start: 20120504
  47. HERCEPTIN [Suspect]
     Active Substance: TRASTUZUMAB
     Dosage: 156 MG, UNK
     Route: 042
     Dates: start: 20121214
  48. HERCEPTIN [Suspect]
     Active Substance: TRASTUZUMAB
     Dosage: 156 MG, UNK
     Route: 042
     Dates: start: 20121228
  49. HERCEPTIN [Suspect]
     Active Substance: TRASTUZUMAB
     Dosage: 156 MG, UNK
     Route: 042
     Dates: start: 20130125
  50. DECADRON [Concomitant]
     Active Substance: DEXAMETHASONE
     Dosage: 10 MG, UNK
  51. HERCEPTIN [Suspect]
     Active Substance: TRASTUZUMAB
     Dosage: 140 MG, UNK
     Route: 042
     Dates: start: 20120427
  52. HERCEPTIN [Suspect]
     Active Substance: TRASTUZUMAB
     Dosage: 140 MG, UNK
     Route: 042
     Dates: start: 20120601
  53. HERCEPTIN [Suspect]
     Active Substance: TRASTUZUMAB
     Dosage: 140 MG, UNK
     Route: 042
     Dates: start: 20120817
  54. HERCEPTIN [Suspect]
     Active Substance: TRASTUZUMAB
     Dosage: 156 MG, UNK
     Route: 042
     Dates: start: 20121026
  55. HERCEPTIN [Suspect]
     Active Substance: TRASTUZUMAB
     Dosage: 156 MG, UNK
     Route: 042
     Dates: start: 20130308
  56. TAXOTERE [Suspect]
     Active Substance: DOCETAXEL
     Indication: BREAST CANCER
     Dosage: 27 MG, UNK
     Route: 042
  57. ZOFRAN                             /00955301/ [Concomitant]
     Active Substance: ONDANSETRON HYDROCHLORIDE
     Dosage: UNK
     Route: 042

REACTIONS (12)
  - Pain in extremity [Unknown]
  - Malaise [Unknown]
  - Pruritus [Unknown]
  - Sleep disorder [Unknown]
  - Nausea [Unknown]
  - Erythema [Unknown]
  - Throat irritation [Unknown]
  - Chest discomfort [Unknown]
  - Dysuria [Unknown]
  - Dyspnoea [Unknown]
  - Blood pressure increased [Unknown]
  - Burning sensation [Unknown]
